FAERS Safety Report 25724892 (Version 2)
Quarter: 2025Q3

REPORT INFORMATION
  Report Type: Spontaneous
  Country: US (occurrence: US)
  Receive Date: 20250826
  Receipt Date: 20250828
  Transmission Date: 20251021
  Serious: No
  Sender: NOVARTIS
  Company Number: US-002147023-NVSC2025US130050

PATIENT
  Sex: Male

DRUGS (3)
  1. TAFINLAR [Suspect]
     Active Substance: DABRAFENIB MESYLATE
     Indication: Fatigue
     Dosage: 150 MG, BID
     Route: 048
     Dates: start: 202506
  2. MEKINIST [Suspect]
     Active Substance: TRAMETINIB DIMETHYL SULFOXIDE
     Indication: Fatigue
     Dosage: 2 MG, QD
     Route: 048
     Dates: start: 202506
  3. ZELBORAF [Concomitant]
     Active Substance: VEMURAFENIB
     Indication: Product used for unknown indication
     Route: 065

REACTIONS (1)
  - Drug ineffective for unapproved indication [Unknown]
